FAERS Safety Report 8263515-4 (Version None)
Quarter: 2012Q2

REPORT INFORMATION
  Report Type: 
  Country: None (occurrence: None)
  Receive Date: 20120405
  Receipt Date: 20120403
  Transmission Date: 20120825
  Serious: Yes (Death)
  Sender: FDA-Public Use
  Company Number: AU-B.I. PHARMACEUTICALS,INC./RIDGEFIELD-2012-AU-00088AU

PATIENT
  Sex: Female

DRUGS (7)
  1. PRADAXA [Suspect]
     Indication: CEREBROVASCULAR ACCIDENT PROPHYLAXIS
     Dosage: 220 MG
     Dates: start: 20110715, end: 20111101
  2. PHYSIOTENS [Concomitant]
     Dosage: 200 MG
  3. NITRODUR 5 [Concomitant]
  4. DILANTIN [Concomitant]
     Dosage: 100 MG
  5. METOPROLOL SUCCINATE [Concomitant]
     Dosage: 50 MG
  6. OLMESARTAN MEDOXOMIL [Concomitant]
     Dosage: 20 MG
  7. CADUET [Concomitant]
     Dosage: 5/80 MG DAILY

REACTIONS (1)
  - NEOPLASM MALIGNANT [None]
